FAERS Safety Report 5718388-8 (Version None)
Quarter: 2008Q2

REPORT INFORMATION
  Report Type: 
  Country: None (occurrence: None)
  Receive Date: 20080425
  Receipt Date: 20070705
  Transmission Date: 20081010
  Serious: No
  Sender: FDA-Public Use
  Company Number: A0661934A

PATIENT
  Age: 23 Year
  Sex: Female

DRUGS (1)
  1. DEXEDRINE [Suspect]
     Indication: NARCOLEPSY
     Dosage: 2TAB TWICE PER DAY
     Route: 048
     Dates: start: 20070301, end: 20070702

REACTIONS (1)
  - ALOPECIA [None]
